FAERS Safety Report 12247103 (Version 2)
Quarter: 2016Q2

REPORT INFORMATION
  Report Type: Spontaneous
  Country: JP (occurrence: JP)
  Receive Date: 20160407
  Receipt Date: 20160530
  Transmission Date: 20160815
  Serious: Yes (Hospitalization, Other)
  Sender: FDA-Public Use
  Company Number: JP-BRISTOL-MYERS SQUIBB COMPANY-BMS-2015-070920

PATIENT
  Age: 82 Year
  Sex: Male
  Weight: 57 kg

DRUGS (9)
  1. AMLODIPINE [Concomitant]
     Active Substance: AMLODIPINE BESYLATE
     Indication: HYPERTENSION
     Dosage: 5 MG, QD
     Route: 048
  2. ELIQUIS [Suspect]
     Active Substance: APIXABAN
     Indication: CEREBROVASCULAR ACCIDENT PROPHYLAXIS
     Dosage: 2.5 MG, BID
     Route: 048
  3. ASPIRIN                            /00002701/ [Concomitant]
     Active Substance: ASPIRIN
     Indication: ANGINA UNSTABLE
     Dosage: 100 MG, QD
     Route: 048
     Dates: start: 20151104
  4. ELIQUIS [Suspect]
     Active Substance: APIXABAN
     Dosage: 25 MG, BID
     Route: 065
     Dates: start: 20141104
  5. CLOPIDOGREL [Concomitant]
     Active Substance: CLOPIDOGREL BISULFATE
     Indication: PRODUCT USED FOR UNKNOWN INDICATION
     Dosage: 75 MG, UNK
     Route: 048
     Dates: start: 20141104
  6. DISOPYRAMIDE PHOSPHATE. [Concomitant]
     Active Substance: DISOPYRAMIDE PHOSPHATE
     Indication: MYOCARDIAL INFARCTION
     Dosage: 150 MG, QD
     Route: 065
  7. ROSUVASTATIN. [Concomitant]
     Active Substance: ROSUVASTATIN
     Indication: HYPERLIPIDAEMIA
     Dosage: 2.5 MG, QD
     Route: 048
  8. FUROSEMIDE. [Concomitant]
     Active Substance: FUROSEMIDE
     Indication: HYPERTENSION
     Dosage: 10 MG, QD
     Route: 065
  9. CANDESARTAN [Concomitant]
     Active Substance: CANDESARTAN
     Indication: PRODUCT USED FOR UNKNOWN INDICATION
     Dosage: 5 MG, QD
     Route: 048

REACTIONS (2)
  - Cerebral infarction [Recovered/Resolved with Sequelae]
  - Stent placement [Recovered/Resolved with Sequelae]

NARRATIVE: CASE EVENT DATE: 20141109
